FAERS Safety Report 4764514-7 (Version None)
Quarter: 2005Q3

REPORT INFORMATION
  Report Type: 
  Country: None (occurrence: None)
  Receive Date: 20050906
  Receipt Date: 20050824
  Transmission Date: 20060218
  Serious: Yes (Disabling, Other)
  Sender: FDA-Public Use
  Company Number: 2005119706

PATIENT
  Age: 35 Year
  Sex: Male
  Weight: 77.5651 kg

DRUGS (4)
  1. VISTARIL [Suspect]
     Indication: PRURITUS
     Dosage: (25 MG, PRN),
     Dates: end: 19920101
  2. PREDNISONE [Suspect]
     Indication: ILL-DEFINED DISORDER
  3. ANALGESICS (ANALGESICS) [Concomitant]
  4. ALL OTHER THERAPEUTIC PRODUCTS (ALL OTHER THERAPEUTIC PRODUCTS) [Concomitant]

REACTIONS (8)
  - BODY HEIGHT DECREASED [None]
  - BONE DISORDER [None]
  - ECONOMIC PROBLEM [None]
  - HIP ARTHROPLASTY [None]
  - HIP FRACTURE [None]
  - INTESTINAL HAEMORRHAGE [None]
  - SHOULDER ARTHROPLASTY [None]
  - SPINAL COMPRESSION FRACTURE [None]
